FAERS Safety Report 23508794 (Version 1)
Quarter: 2024Q1

REPORT INFORMATION
  Report Type: Spontaneous
  Country: IL (occurrence: IL)
  Receive Date: 20240209
  Receipt Date: 20240209
  Transmission Date: 20240410
  Serious: Yes (Other)
  Sender: FDA-Public Use
  Company Number: IL-AMERICAN REGENT INC-2024000449

PATIENT
  Age: 26 Year
  Sex: Female

DRUGS (2)
  1. FERINJECT [Suspect]
     Active Substance: FERRIC CARBOXYMALTOSE
     Indication: Product used for unknown indication
     Dosage: 1000 MILLIGRAM, DILUTED IN 250 SODIUM CHLORIDE (NACL)
     Dates: start: 20240110, end: 20240110
  2. FERINJECT [Suspect]
     Active Substance: FERRIC CARBOXYMALTOSE
     Dosage: UNK

REACTIONS (7)
  - Loss of consciousness [Recovered/Resolved]
  - Oxygen saturation decreased [Unknown]
  - Cyanosis [Unknown]
  - Vision blurred [Unknown]
  - Fatigue [Recovered/Resolved]
  - Muscle spasms [Unknown]
  - Abdominal pain upper [Unknown]

NARRATIVE: CASE EVENT DATE: 20240110
